FAERS Safety Report 8251961-4 (Version None)
Quarter: 2012Q2

REPORT INFORMATION
  Report Type: 
  Country: None (occurrence: None)
  Receive Date: 20120402
  Receipt Date: 20120329
  Transmission Date: 20120825
  Serious: Yes (Death, Hospitalization)
  Sender: FDA-Public Use
  Company Number: PHHY2012CO011660

PATIENT
  Age: 34 Year
  Sex: Male

DRUGS (3)
  1. LEUCOVORIN CALCIUM [Concomitant]
     Dosage: UNK UKN, UNK
  2. ONDANSETRON [Concomitant]
     Dosage: UNK UKN, UNK
  3. FLUOROURACIL [Suspect]
     Dosage: 600 MG, UNK
     Route: 042
     Dates: start: 20111010, end: 20120114

REACTIONS (3)
  - DEATH [None]
  - MOUTH INJURY [None]
  - FEEDING DISORDER [None]
